FAERS Safety Report 11749276 (Version 2)
Quarter: 2015Q4

REPORT INFORMATION
  Report Type: Spontaneous
  Country: US (occurrence: US)
  Receive Date: 20151118
  Receipt Date: 20151118
  Transmission Date: 20160304
  Serious: No
  Sender: FDA-Public Use
  Company Number: US-TEVA-608811ACC

PATIENT
  Age: 32 Year
  Sex: Female
  Weight: 78.09 kg

DRUGS (2)
  1. PRENATAL VITAMINS [Concomitant]
     Active Substance: VITAMINS
     Indication: SUPPLEMENTATION THERAPY
  2. PARAGARD T 380A [Suspect]
     Active Substance: COPPER
     Indication: CONTRACEPTION
     Dates: start: 20120610, end: 20150518

REACTIONS (3)
  - Embedded device [Unknown]
  - Medical device complication [Unknown]
  - Medical device complication [Unknown]

NARRATIVE: CASE EVENT DATE: 2015
